FAERS Safety Report 7994241-4 (Version None)
Quarter: 2011Q4

REPORT INFORMATION
  Report Type: 
  Country: None (occurrence: None)
  Receive Date: 20111220
  Receipt Date: 20111208
  Transmission Date: 20120403
  Serious: Yes (Other)
  Sender: FDA-Public Use
  Company Number: US-JNJFOC-20111204013

PATIENT
  Sex: Female
  Weight: 68.04 kg

DRUGS (4)
  1. TRAMADOL HCL [Concomitant]
     Indication: PAIN
     Route: 048
     Dates: start: 20090101
  2. REMICADE [Suspect]
     Indication: RHEUMATOID ARTHRITIS
     Route: 042
     Dates: start: 20100101
  3. METHOTREXATE [Concomitant]
     Indication: RHEUMATOID ARTHRITIS
     Dosage: .5MG/TABLET/.5MG /5 PILLS ON FRIDAY/ORAL
     Route: 048
     Dates: start: 20060101
  4. REMICADE [Suspect]
     Route: 042
     Dates: start: 20100101

REACTIONS (4)
  - DEPRESSION [None]
  - SINUSITIS [None]
  - PSORIASIS [None]
  - PAIN [None]
